FAERS Safety Report 7021664-2 (Version None)
Quarter: 2010Q3

REPORT INFORMATION
  Report Type: 
  Country: None (occurrence: None)
  Receive Date: 20100928
  Receipt Date: 20100914
  Transmission Date: 20110219
  Serious: Yes (Other)
  Sender: FDA-Public Use
  Company Number: 2010AP001895

PATIENT
  Age: 36 Year
  Sex: Female

DRUGS (2)
  1. TERBINAFINE HYDROCHLORIDE [Suspect]
     Indication: ONYCHOMYCOSIS
     Dosage: 250 MG;QD ; PO
     Route: 048
     Dates: start: 20100629, end: 20100701
  2. DEPO-PROVERA SUSPENSION/INJ [Suspect]
     Indication: CONTRACEPTION
     Dosage: 150 MG;ONCE EVERY THREE MONTHS IM
     Route: 030

REACTIONS (2)
  - DRUG INTERACTION [None]
  - METRORRHAGIA [None]
